FAERS Safety Report 4981303-9 (Version None)
Quarter: 2006Q2

REPORT INFORMATION
  Report Type: 
  Country: None (occurrence: None)
  Receive Date: 20060424
  Receipt Date: 20050112
  Transmission Date: 20061013
  Serious: Yes (Hospitalization, Other)
  Sender: FDA-Public Use
  Company Number: US-MERCK-0501USA01910

PATIENT
  Age: 62 Year
  Sex: Female
  Weight: 79 kg

DRUGS (4)
  1. VIOXX [Suspect]
     Indication: ARTHRITIS
     Route: 048
     Dates: start: 20000401, end: 20040930
  2. VIOXX [Suspect]
     Route: 048
     Dates: start: 20000401, end: 20040930
  3. VIOXX [Suspect]
     Indication: OEDEMA PERIPHERAL
     Route: 048
     Dates: start: 20000401, end: 20040930
  4. VIOXX [Suspect]
     Route: 048
     Dates: start: 20000401, end: 20040930

REACTIONS (22)
  - ADJUSTMENT DISORDER WITH DEPRESSED MOOD [None]
  - ANXIETY [None]
  - AORTIC ARTERIOSCLEROSIS [None]
  - AORTIC VALVE INCOMPETENCE [None]
  - ARTHRALGIA [None]
  - BACK INJURY [None]
  - CEREBROVASCULAR ACCIDENT [None]
  - CHRONIC OBSTRUCTIVE PULMONARY DISEASE [None]
  - DEPRESSION [None]
  - FALL [None]
  - HYPERTENSION [None]
  - LIMB DISCOMFORT [None]
  - LUMBAR RADICULOPATHY [None]
  - LUNG NEOPLASM [None]
  - MASS [None]
  - MONARTHRITIS [None]
  - OEDEMA PERIPHERAL [None]
  - PNEUMONIA [None]
  - RHINITIS ALLERGIC [None]
  - SQUAMOUS CELL CARCINOMA [None]
  - TRANSIENT ISCHAEMIC ATTACK [None]
  - WEIGHT INCREASED [None]
